FAERS Safety Report 5403914-9 (Version None)
Quarter: 2007Q3

REPORT INFORMATION
  Report Type: 
  Country: None (occurrence: None)
  Receive Date: 20070731
  Receipt Date: 20070731
  Transmission Date: 20080115
  Serious: Yes (Hospitalization)
  Sender: FDA-Public Use
  Company Number: None

PATIENT
  Sex: Female
  Weight: 56 kg

DRUGS (4)
  1. CISPLATIN [Suspect]
     Dosage: 78 MG
  2. DOXORUBICIN HYDROCHLORIDE [Suspect]
     Dosage: 70 MG
  3. G-CSF (FILGRASTIM, AMGEN) [Suspect]
     Dosage: 6 MG
  4. TAXOL [Suspect]
     Dosage: 248 MG

REACTIONS (14)
  - ASTHENIA [None]
  - BACTERAEMIA [None]
  - DEHYDRATION [None]
  - DRUG TOXICITY [None]
  - DYSPHAGIA [None]
  - HYPONATRAEMIA [None]
  - INAPPROPRIATE ANTIDIURETIC HORMONE SECRETION [None]
  - MIGRAINE [None]
  - NAUSEA [None]
  - NEUTROPENIA [None]
  - ODYNOPHAGIA [None]
  - ORAL INTAKE REDUCED [None]
  - PANCYTOPENIA [None]
  - VOMITING [None]
